FAERS Safety Report 6246285-0 (Version None)
Quarter: 2009Q2

REPORT INFORMATION
  Report Type: 
  Country: None (occurrence: None)
  Receive Date: 20090626
  Receipt Date: 20090618
  Transmission Date: 20091009
  Serious: Yes (Death, Hospitalization)
  Sender: FDA-Public Use
  Company Number: PHHY2009GB21470

PATIENT
  Sex: Female

DRUGS (4)
  1. CLOZARIL [Suspect]
     Indication: PSYCHOTIC DISORDER
     Dosage: 25 MG, UNK
     Route: 048
     Dates: start: 20071221
  2. CLOZARIL [Suspect]
     Indication: PARKINSON'S DISEASE
  3. SINEMET CR [Concomitant]
     Indication: PARKINSON'S DISEASE
     Dosage: 0.5 DF, TID
     Route: 048
  4. PRAMIPEXOLE DIHYDROCHLORIDE [Concomitant]
     Dosage: 0.18 MG, TID

REACTIONS (4)
  - GASTRIC HAEMORRHAGE [None]
  - PARKINSON'S DISEASE [None]
  - SEPSIS [None]
  - URINARY TRACT INFECTION [None]
